FAERS Safety Report 17880480 (Version 1)
Quarter: 2020Q2

REPORT INFORMATION
  Report Type: Spontaneous
  Country: US (occurrence: US)
  Receive Date: 20200609
  Receipt Date: 20200609
  Transmission Date: 20200714
  Serious: Yes (Hospitalization, Other)
  Sender: FDA-Public Use
  Company Number: None

PATIENT
  Sex: Female
  Weight: 49.9 kg

DRUGS (2)
  1. BREAST IMPLANT (SALINE WITH SILICON) [Suspect]
     Active Substance: DEVICE
  2. ZENATANE [Suspect]
     Active Substance: ISOTRETINOIN
     Indication: ACNE
     Dates: start: 20150728, end: 20160729

REACTIONS (18)
  - Weight decreased [None]
  - Condition aggravated [None]
  - Breast pain [None]
  - Stress at work [None]
  - Symptom recurrence [None]
  - Dyspepsia [None]
  - Gastritis [None]
  - Night blindness [None]
  - Pelvic pain [None]
  - Inflammation [None]
  - Abdominal pain upper [None]
  - Food intolerance [None]
  - Dehydration [None]
  - Pain [None]
  - Disease recurrence [None]
  - Chest pain [None]
  - Antinuclear antibody positive [None]
  - Obstructive nephropathy [None]
